FAERS Safety Report 14600927 (Version 1)
Quarter: 2018Q1

REPORT INFORMATION
  Report Type: Report from Study
  Country: AU (occurrence: AU)
  Receive Date: 20180305
  Receipt Date: 20180305
  Transmission Date: 20180509
  Serious: Yes (Other)
  Sender: FDA-Public Use
  Company Number: AU-GILEAD-2017-0300073

PATIENT
  Age: 72 Year
  Sex: Male
  Weight: 73.1 kg

DRUGS (2)
  1. TENOFOVIR DISOPROXIL FUMARATE. [Suspect]
     Active Substance: TENOFOVIR DISOPROXIL FUMARATE
     Indication: HIV INFECTION
     Dosage: UNK
     Route: 065
  2. CALCIUM [Concomitant]
     Active Substance: CALCIUM

REACTIONS (2)
  - Hand fracture [Unknown]
  - Rib fracture [Unknown]

NARRATIVE: CASE EVENT DATE: 20140424
